FAERS Safety Report 9205229 (Version 1)
Quarter: 2013Q2

REPORT INFORMATION
  Report Type: Spontaneous
  Country: US (occurrence: US)
  Receive Date: 20130402
  Receipt Date: 20130402
  Transmission Date: 20140414
  Serious: No
  Sender: FDA-Public Use
  Company Number: US-ASTRAZENECA-2013SE18763

PATIENT
  Sex: Female

DRUGS (4)
  1. LISINOPRIL [Suspect]
     Route: 048
  2. CRESTOR [Suspect]
     Route: 048
  3. LYRICA [Concomitant]
     Route: 048
  4. LABETA [Concomitant]
     Dosage: OFF AND ON
     Route: 048
     Dates: start: 2007

REACTIONS (2)
  - Adverse event [Unknown]
  - Drug hypersensitivity [Unknown]
